FAERS Safety Report 5184370-5 (Version None)
Quarter: 2006Q4

REPORT INFORMATION
  Report Type: 
  Country: None (occurrence: None)
  Receive Date: 20061220
  Receipt Date: 20060403
  Transmission Date: 20070319
  Serious: No
  Sender: FDA-Public Use
  Company Number: US-GLAXOSMITHKLINE-A0600256A

PATIENT
  Age: 26 Year
  Sex: Male

DRUGS (1)
  1. NICODERM CQ [Suspect]
     Route: 062
     Dates: start: 20060227

REACTIONS (11)
  - ASTHENIA [None]
  - DIZZINESS [None]
  - DRY MOUTH [None]
  - EUPHORIC MOOD [None]
  - FEELING ABNORMAL [None]
  - LIP DRY [None]
  - MYOPIA [None]
  - NAUSEA [None]
  - PHOTOSENSITIVITY REACTION [None]
  - SKIN DISCOLOURATION [None]
  - TREMOR [None]
